FAERS Safety Report 8540754 (Version 2)
Quarter: 2013Q2

REPORT INFORMATION
  Report Type: Spontaneous
  Country: US (occurrence: None)
  Receive Date: 20120315
  Receipt Date: 20130107
  Transmission Date: 20140414
  Serious: Yes (Other)
  Sender: FDA-Public Use
  Company Number: PHHY2011US22680

PATIENT
  Age: 60 Year
  Sex: Female

DRUGS (4)
  1. GILENYA (FTY) CAPSULE, 0.5MG [Suspect]
     Indication: RELAPSING-REMITTING MULTIPLE SCLEROSIS
     Dosage: 0.5 MG, QD, ORAL
     Route: 048
     Dates: start: 20101123
  2. VICODIN ES [Concomitant]
  3. XANAX [Concomitant]
  4. MELOXICAM [Concomitant]

REACTIONS (4)
  - PIGMENTATION DISORDER [None]
  - ABDOMINAL PAIN [None]
  - BACK PAIN [None]
  - Fatigue [None]
